FAERS Safety Report 6336770-5 (Version None)
Quarter: 2009Q3

REPORT INFORMATION
  Report Type: 
  Country: None (occurrence: None)
  Receive Date: 20090828
  Receipt Date: 20090828
  Transmission Date: 20100115
  Serious: Yes (Other)
  Sender: FDA-Public Use
  Company Number: None

PATIENT
  Sex: Male
  Weight: 122 kg

DRUGS (4)
  1. SUTENT [Suspect]
     Indication: MALIGNANT MELANOMA
     Dosage: 12.5MG ORAL QD
     Route: 048
     Dates: start: 20090715, end: 20090813
  2. SUTENT [Suspect]
     Indication: MALIGNANT MELANOMA
     Dosage: 25MG ORAL QD
     Route: 048
     Dates: start: 20090715, end: 20090813
  3. VIAGRA [Concomitant]
  4. LISINOPRIL [Concomitant]

REACTIONS (2)
  - DISEASE PROGRESSION [None]
  - LIPASE INCREASED [None]
